FAERS Safety Report 17606904 (Version 1)
Quarter: 2020Q1

REPORT INFORMATION
  Report Type: Report from Study
  Country: US (occurrence: US)
  Receive Date: 20200331
  Receipt Date: 20200331
  Transmission Date: 20200409
  Serious: Yes (Hospitalization)
  Sender: FDA-Public Use
  Company Number: US-BAYER-2020-053097

PATIENT
  Age: 63 Year
  Sex: Male

DRUGS (15)
  1. STIVARGA [Suspect]
     Active Substance: REGORAFENIB
     Dosage: 160 MG, QD FOR WEEK 3, OFF WEEK 4. DISCARD REMAINDER
     Route: 048
     Dates: start: 202003
  2. XANAX [Concomitant]
     Active Substance: ALPRAZOLAM
     Dosage: 0.5 MG
  3. JANUVIA [Concomitant]
     Active Substance: SITAGLIPTIN PHOSPHATE
     Dosage: 25 MG
  4. STIVARGA [Suspect]
     Active Substance: REGORAFENIB
     Dosage: 80 MG, QD FOR WEEK 1
     Route: 048
     Dates: start: 20200306, end: 202003
  5. LOMOTIL [LOPERAMIDE HYDROCHLORIDE] [Concomitant]
     Dosage: 2.5-0.025 MG
  6. NADOLOL. [Concomitant]
     Active Substance: NADOLOL
     Dosage: 20 MG
  7. GLIMEPIRIDE. [Concomitant]
     Active Substance: GLIMEPIRIDE
     Dosage: 2 MG
  8. ZOFRAN [Concomitant]
     Active Substance: ONDANSETRON HYDROCHLORIDE
     Dosage: 4 MG
  9. FUROSEMIDE. [Concomitant]
     Active Substance: FUROSEMIDE
     Dosage: 20 MG
  10. ATORVASTATIN [Concomitant]
     Active Substance: ATORVASTATIN
     Dosage: 40 MG
  11. STIVARGA [Suspect]
     Active Substance: REGORAFENIB
     Dosage: 120 MG, QD FOR WEEK 2
     Route: 048
     Dates: start: 202003, end: 202003
  12. LEVOTHYROXINE. [Concomitant]
     Active Substance: LEVOTHYROXINE
     Dosage: 50 MCG
  13. SPIRONOLACTONE. [Concomitant]
     Active Substance: SPIRONOLACTONE
     Dosage: 100 MG
  14. FERROUS SULFATE. [Concomitant]
     Active Substance: FERROUS SULFATE
     Dosage: 325 MG
  15. PANTOPRAZOLE [Concomitant]
     Active Substance: PANTOPRAZOLE
     Dosage: 40 MG

REACTIONS (3)
  - Hospitalisation [None]
  - Asthenia [None]
  - Off label use [None]

NARRATIVE: CASE EVENT DATE: 20200306
